FAERS Safety Report 9529434 (Version 2)
Quarter: 2013Q3

REPORT INFORMATION
  Report Type: Spontaneous
  Country: FR (occurrence: FR)
  Receive Date: 20130917
  Receipt Date: 20130918
  Transmission Date: 20140515
  Serious: Yes (Hospitalization, Other)
  Sender: FDA-Public Use
  Company Number: FR-PFIZER INC-2013263188

PATIENT
  Age: 74 Year
  Sex: Female

DRUGS (6)
  1. EFFEXOR LP [Suspect]
     Indication: ANXIETY DISORDER
     Dosage: 37.5 MG A DAY
     Route: 048
     Dates: end: 201304
  2. INEXIUM [Suspect]
     Indication: GASTRITIS
     Dosage: 40 MG A DAY
     Route: 048
     Dates: end: 2013
  3. INEXIUM [Suspect]
     Dosage: 20 MG A DAY
     Route: 048
     Dates: start: 2013, end: 201304
  4. MICARDIS [Concomitant]
     Dosage: UNK
  5. XANAX [Concomitant]
  6. STILNOX [Concomitant]

REACTIONS (5)
  - Hyponatraemia [Recovered/Resolved]
  - Pituitary tumour benign [Unknown]
  - Inappropriate antidiuretic hormone secretion [Recovered/Resolved]
  - Confusional state [Unknown]
  - Agitation [Unknown]
